FAERS Safety Report 7638792-0 (Version None)
Quarter: 2011Q3

REPORT INFORMATION
  Report Type: 
  Country: None (occurrence: None)
  Receive Date: 20110727
  Receipt Date: 20110719
  Transmission Date: 20111222
  Serious: Yes (Other)
  Sender: FDA-Public Use
  Company Number: US-ROCHE-791385

PATIENT
  Sex: Male

DRUGS (2)
  1. CELLCEPT [Suspect]
     Route: 065
  2. CELLCEPT [Suspect]
     Dosage: DOSE: 700 - 750 MG DAILY
     Route: 065

REACTIONS (3)
  - CHOLECYSTECTOMY [None]
  - GASTRIC DISORDER [None]
  - DIARRHOEA [None]
